FAERS Safety Report 4324636-1 (Version None)
Quarter: 2004Q1

REPORT INFORMATION
  Report Type: 
  Country: None (occurrence: None)
  Receive Date: 20040322
  Receipt Date: 20040113
  Transmission Date: 20041129
  Serious: Yes (Disabling)
  Sender: FDA-Public Use
  Company Number: 200312396GDS

PATIENT
  Age: 56 Year
  Sex: Male

DRUGS (1)
  1. AVELOX [Suspect]
     Indication: SINUSITIS
     Dosage: 400 MG, TOTAL DAILY, ORAL
     Route: 048
     Dates: start: 20030627, end: 20030702

REACTIONS (12)
  - ACTIVITIES OF DAILY LIVING IMPAIRED [None]
  - ALBINISM [None]
  - BLINDNESS [None]
  - IRIDOCYCLITIS [None]
  - IRIS ADHESIONS [None]
  - MACULAR OEDEMA [None]
  - MYDRIASIS [None]
  - PHOTOPHOBIA [None]
  - PUPIL FIXED [None]
  - REFRACTION DISORDER [None]
  - SELF-MEDICATION [None]
  - UVEITIS [None]
